FAERS Safety Report 4604290-1 (Version None)
Quarter: 2005Q1

REPORT INFORMATION
  Report Type: 
  Country: None (occurrence: None)
  Receive Date: 20050308
  Receipt Date: 20050308
  Transmission Date: 20050727
  Serious: Yes (Hospitalization)
  Sender: FDA-Public Use
  Company Number: None

PATIENT
  Age: 79 Year
  Sex: Male
  Weight: 97.3 kg

DRUGS (7)
  1. LISINOPRIL [Suspect]
     Indication: HYPERTENSION
     Dosage: ONE-HALF TAB PO DAILY
     Route: 048
     Dates: start: 20020901, end: 20040928
  2. ASPIRIN [Concomitant]
  3. GEMFIBROZIL [Concomitant]
  4. SIMVASTATIN [Concomitant]
  5. ISOSORBIDE MONONITRATE [Concomitant]
  6. ATENOLOL [Concomitant]
  7. HYDROCHLOROTHIAZIDE [Concomitant]

REACTIONS (1)
  - SWELLING FACE [None]
